FAERS Safety Report 4493964-1 (Version None)
Quarter: 2004Q4

REPORT INFORMATION
  Report Type: 
  Country: None (occurrence: None)
  Receive Date: 20041103
  Receipt Date: 20041103
  Transmission Date: 20050328
  Serious: Yes (Other)
  Sender: FDA-Public Use
  Company Number: None

PATIENT
  Sex: Female
  Weight: 65.7716 kg

DRUGS (1)
  1. PHENYTOIN [Suspect]
     Dosage: CHANGE TO BMN DILANTIN [LIFETIME]

REACTIONS (3)
  - ANTICONVULSANT DRUG LEVEL DECREASED [None]
  - FEELING ABNORMAL [None]
  - PHARMACEUTICAL PRODUCT COMPLAINT [None]
